FAERS Safety Report 8133764-4 (Version None)
Quarter: 2012Q1

REPORT INFORMATION
  Report Type: 
  Country: None (occurrence: None)
  Receive Date: 20120213
  Receipt Date: 20120213
  Transmission Date: 20120608
  Serious: Yes (Hospitalization)
  Sender: FDA-Public Use
  Company Number: None

PATIENT
  Age: 67 Year
  Sex: Female
  Weight: 45.812 kg

DRUGS (1)
  1. NIFEDIPINE [Suspect]
     Indication: HYPERTENSION
     Dosage: 30MG
     Route: 048
     Dates: start: 20111103, end: 20120202

REACTIONS (14)
  - CONSTIPATION [None]
  - COUGH [None]
  - DYSGEUSIA [None]
  - CARDIAC FLUTTER [None]
  - ASTHENIA [None]
  - HEADACHE [None]
  - DIZZINESS [None]
  - CHEST DISCOMFORT [None]
  - NAUSEA [None]
  - BALANCE DISORDER [None]
  - DYSPNOEA [None]
  - DYSPEPSIA [None]
  - FATIGUE [None]
  - ACTIVITIES OF DAILY LIVING IMPAIRED [None]
